FAERS Safety Report 6199186-0 (Version None)
Quarter: 2009Q2

REPORT INFORMATION
  Report Type: 
  Country: None (occurrence: None)
  Receive Date: 20090522
  Receipt Date: 20090417
  Transmission Date: 20091009
  Serious: No
  Sender: FDA-Public Use
  Company Number: A0779404A

PATIENT
  Sex: Male

DRUGS (1)
  1. VERAMYST [Suspect]
     Route: 045

REACTIONS (2)
  - DRUG INEFFECTIVE [None]
  - SINUS CONGESTION [None]
